FAERS Safety Report 8764888 (Version 1)
Quarter: 2012Q4

REPORT INFORMATION
  Report Type: 
  Country: US (occurrence: US)
  Receive Date: 20120901
  Receipt Date: 20120901
  Transmission Date: 20130627
  Serious: Yes (Other)
  Sender: FDA-Public Use
  Company Number: US-TEVA-356331USA

PATIENT
  Sex: Female
  Weight: 74.91 kg

DRUGS (10)
  1. TREANDA [Suspect]
     Indication: CHRONIC LYMPHOCYTIC LEUKAEMIA
     Route: 042
     Dates: start: 2012
  2. COMPAZINE [Concomitant]
     Indication: NAUSEA
     Dates: start: 201112
  3. POTASSIUM CHLORIDE [Concomitant]
     Indication: SUPPLEMENTATION THERAPY
     Dates: start: 201112
  4. LASIX [Concomitant]
     Indication: HYPERTENSION
     Route: 048
  5. LISINOPRIL/HCTZ [Concomitant]
     Indication: HYPERTENSION
     Dosage: 20mg/12.5mg
  6. IRON [Concomitant]
     Indication: IRON DEFICIENCY ANAEMIA
  7. PRILOSEC [Concomitant]
     Indication: GASTROOESOPHAGEAL REFLUX DISEASE
  8. CELEXA [Concomitant]
     Indication: DEPRESSION
  9. BENTYL [Concomitant]
  10. GLUCOVANCE [Concomitant]
     Indication: DIABETES MELLITUS

REACTIONS (1)
  - Blindness [Not Recovered/Not Resolved]
